FAERS Safety Report 22678164 (Version 2)
Quarter: 2023Q4

REPORT INFORMATION
  Report Type: Report from Study
  Country: AU (occurrence: AU)
  Receive Date: 20230706
  Receipt Date: 20231101
  Transmission Date: 20240110
  Serious: No
  Sender: FDA-Public Use
  Company Number: AU-002147023-NVSC2023AU150929

PATIENT
  Sex: Female

DRUGS (1)
  1. COSENTYX [Suspect]
     Active Substance: SECUKINUMAB
     Indication: Psoriasis
     Dosage: 300 MG, QMO
     Route: 058
     Dates: start: 20220131

REACTIONS (4)
  - Pain in extremity [Unknown]
  - Stress [Unknown]
  - Rash [Unknown]
  - Drug ineffective [Unknown]
